FAERS Safety Report 8539130-1 (Version None)
Quarter: 2012Q3

REPORT INFORMATION
  Report Type: 
  Country: None (occurrence: None)
  Receive Date: 20120726
  Receipt Date: 20120719
  Transmission Date: 20120928
  Serious: Yes (Other)
  Sender: FDA-Public Use
  Company Number: JP-VERTEX PHARMACEUTICALS INC.-AE-2012-008714

PATIENT
  Age: 54 Year
  Sex: Male

DRUGS (7)
  1. TELAVIC (TELAPREVIR) [Suspect]
     Indication: HEPATITIS C
     Route: 048
     Dates: start: 20120404, end: 20120626
  2. DERMOSOL- G [Concomitant]
     Route: 061
     Dates: start: 20120409
  3. REBETOL [Concomitant]
     Indication: HEPATITIS C
     Route: 048
     Dates: start: 20120404, end: 20120424
  4. REBETOL [Concomitant]
     Route: 048
     Dates: start: 20120509
  5. EPINASTINE HYDROCHLORIDE [Concomitant]
     Route: 048
     Dates: start: 20120409
  6. REBETOL [Concomitant]
     Route: 048
     Dates: start: 20120425, end: 20120508
  7. PEGINTERFERON ALFA-2B [Concomitant]
     Indication: HEPATITIS C
     Route: 058
     Dates: start: 20120404

REACTIONS (1)
  - WHITE BLOOD CELL COUNT DECREASED [None]
